FAERS Safety Report 7641739-4 (Version None)
Quarter: 2011Q3

REPORT INFORMATION
  Report Type: 
  Country: None (occurrence: None)
  Receive Date: 20110728
  Receipt Date: 20110718
  Transmission Date: 20111222
  Serious: Yes (Death, Hospitalization)
  Sender: FDA-Public Use
  Company Number: US-EISAI INC-E7272-00102-SPO-US

PATIENT
  Age: 59 Year
  Sex: Male
  Weight: 69 kg

DRUGS (6)
  1. CYCLOPHOSPHAMIDE [Concomitant]
     Indication: PERIPHERAL T-CELL LYMPHOMA UNSPECIFIED
  2. DOXORUBICIN HCL [Concomitant]
     Indication: PERIPHERAL T-CELL LYMPHOMA UNSPECIFIED
  3. NEULASTA [Concomitant]
  4. ONTAK [Suspect]
     Indication: PERIPHERAL T-CELL LYMPHOMA UNSPECIFIED
     Dosage: UNKNOWN
     Route: 041
  5. PREDNISONE [Concomitant]
     Indication: PERIPHERAL T-CELL LYMPHOMA UNSPECIFIED
  6. VINCRISTINE [Concomitant]
     Indication: PERIPHERAL T-CELL LYMPHOMA UNSPECIFIED

REACTIONS (1)
  - INTERSTITIAL LUNG DISEASE [None]
